FAERS Safety Report 6993547-5 (Version None)
Quarter: 2010Q3

REPORT INFORMATION
  Report Type: 
  Country: None (occurrence: None)
  Receive Date: 20100917
  Receipt Date: 20100618
  Transmission Date: 20110219
  Serious: No
  Sender: FDA-Public Use
  Company Number: US-ASTRAZENECA-2010SE28726

PATIENT
  Age: 25 Year
  Sex: Female
  Weight: 117.9 kg

DRUGS (2)
  1. SEROQUEL XR [Suspect]
     Indication: BIPOLAR DISORDER
     Route: 048
     Dates: start: 20090101
  2. DEPAKOTE [Concomitant]

REACTIONS (2)
  - FALL [None]
  - JAW FRACTURE [None]
